FAERS Safety Report 8889001 (Version 3)
Quarter: 2014Q3

REPORT INFORMATION
  Report Type: Spontaneous
  Country: US (occurrence: US)
  Receive Date: 20121106
  Receipt Date: 20140806
  Transmission Date: 20150326
  Serious: Yes (Hospitalization, Disabling, Other)
  Sender: FDA-Public Use
  Company Number: US-009507513-1211USA000375

PATIENT
  Sex: Female

DRUGS (1)
  1. NUVARING [Suspect]
     Active Substance: ETHINYL ESTRADIOL\ETONOGESTREL
     Indication: CONTRACEPTION
     Dosage: UNK
     Route: 067
     Dates: start: 2008, end: 20081123

REACTIONS (10)
  - Urinary tract infection [Unknown]
  - Abortion induced [Unknown]
  - Pulmonary embolism [Unknown]
  - Gastrooesophageal reflux disease [Unknown]
  - Cervical dysplasia [Unknown]
  - Anogenital warts [Unknown]
  - Maternal exposure before pregnancy [Unknown]
  - Deep vein thrombosis [Unknown]
  - Stress urinary incontinence [Unknown]
  - High risk sexual behaviour [Unknown]

NARRATIVE: CASE EVENT DATE: 20081123
